FAERS Safety Report 14231786 (Version 10)
Quarter: 2018Q3

REPORT INFORMATION
  Report Type: Spontaneous
  Country: CA (occurrence: CA)
  Receive Date: 20171128
  Receipt Date: 20180904
  Transmission Date: 20181010
  Serious: Yes (Other)
  Sender: FDA-Public Use
  Company Number: CA-CELLTRION INC.-2017CA006289

PATIENT

DRUGS (9)
  1. INFLECTRA [Suspect]
     Active Substance: INFLIXIMAB-DYYB
     Dosage: 400 MG, THEN EVERY 6 WEEKS
     Route: 042
  2. PREDNISONE. [Concomitant]
     Active Substance: PREDNISONE
     Dosage: 30 MG, DAILY
     Route: 065
     Dates: start: 20170704
  3. PREDNISONE. [Concomitant]
     Active Substance: PREDNISONE
     Dosage: 40 MG, UNK
     Route: 065
  4. INFLECTRA [Suspect]
     Active Substance: INFLIXIMAB-DYYB
     Dosage: 502 MG, CYCLIC EVERY 4 WEEKS
     Route: 042
     Dates: start: 20180130, end: 20180130
  5. INFLECTRA [Suspect]
     Active Substance: INFLIXIMAB-DYYB
     Dosage: UNK
     Route: 065
     Dates: start: 20180302
  6. INFLECTRA [Suspect]
     Active Substance: INFLIXIMAB-DYYB
     Dosage: UNK
     Route: 065
  7. INFLECTRA [Suspect]
     Active Substance: INFLIXIMAB-DYYB
     Dosage: 502 MG, CYCLIC,EVERY 6 WEEKS
     Route: 042
     Dates: start: 20171010, end: 20171010
  8. INFLECTRA [Suspect]
     Active Substance: INFLIXIMAB-DYYB
     Indication: COLITIS ULCERATIVE
     Dosage: 400 MG, CYCLIC,Q 0, 2, 6 WEEKS THEN EVERY 8 WEEKS
     Route: 042
     Dates: start: 20170426, end: 20170829
  9. INFLECTRA [Suspect]
     Active Substance: INFLIXIMAB-DYYB
     Dosage: 502 MG, CYCLIC EVERY 4 WEEKS
     Route: 042
     Dates: start: 20171109

REACTIONS (27)
  - Poor venous access [Unknown]
  - C-reactive protein increased [Unknown]
  - Pruritus [Recovered/Resolved]
  - Incorrect dose administered [Unknown]
  - Muscle spasms [Unknown]
  - Eczema [Unknown]
  - Infusion site reaction [Unknown]
  - Condition aggravated [Not Recovered/Not Resolved]
  - Decreased appetite [Recovering/Resolving]
  - Drug effect incomplete [Unknown]
  - Acne [Recovering/Resolving]
  - Drug specific antibody present [Unknown]
  - Chromaturia [Unknown]
  - Urticaria [Unknown]
  - Abdominal pain upper [Unknown]
  - Drug level decreased [Unknown]
  - Poor venous access [Unknown]
  - Oropharyngeal pain [Recovered/Resolved]
  - Drug ineffective [Recovering/Resolving]
  - Clostridium difficile infection [Recovering/Resolving]
  - Pruritus [Recovered/Resolved]
  - Rash [Recovered/Resolved]
  - Rash [Recovered/Resolved]
  - Blood urine present [Unknown]
  - Off label use [Unknown]
  - Weight decreased [Recovering/Resolving]
  - Heart rate decreased [Recovered/Resolved]

NARRATIVE: CASE EVENT DATE: 20170510
